FAERS Safety Report 8510581-4 (Version None)
Quarter: 2012Q3

REPORT INFORMATION
  Report Type: 
  Country: None (occurrence: None)
  Receive Date: 20120716
  Receipt Date: 20120706
  Transmission Date: 20120928
  Serious: Yes (Other)
  Sender: FDA-Public Use
  Company Number: JP-BIOGENIDEC-2007BI021873

PATIENT
  Sex: Male

DRUGS (1)
  1. AVONEX [Suspect]
     Indication: MULTIPLE SCLEROSIS
     Route: 030
     Dates: start: 20070912, end: 20090617

REACTIONS (6)
  - HEPATIC FUNCTION ABNORMAL [None]
  - MULTIPLE SCLEROSIS RELAPSE [None]
  - MYASTHENIA GRAVIS [None]
  - C-REACTIVE PROTEIN INCREASED [None]
  - PYREXIA [None]
  - LYMPHOCYTE PERCENTAGE DECREASED [None]
